FAERS Safety Report 8311738-8 (Version None)
Quarter: 2012Q2

REPORT INFORMATION
  Report Type: 
  Country: None (occurrence: None)
  Receive Date: 20120425
  Receipt Date: 20120424
  Transmission Date: 20120825
  Serious: Yes (Hospitalization)
  Sender: FDA-Public Use
  Company Number: US-GILEAD-2012-0052386

PATIENT
  Sex: Male

DRUGS (2)
  1. LETAIRIS [Suspect]
     Dosage: UNK
  2. LETAIRIS [Suspect]
     Indication: PULMONARY HYPERTENSION
     Dosage: 5 MG, UNK
     Route: 048
     Dates: start: 20111214, end: 20120321

REACTIONS (2)
  - CHEST PAIN [None]
  - ABDOMINAL PAIN UPPER [None]
